FAERS Safety Report 24580133 (Version 1)
Quarter: 2024Q4

REPORT INFORMATION
  Report Type: Spontaneous
  Country: US (occurrence: None)
  Receive Date: 20241104
  Receipt Date: 20241104
  Transmission Date: 20250115
  Serious: Yes (Hospitalization, Disabling, Other)
  Sender: Public
  Company Number: None

PATIENT
  Age: 72 Year
  Sex: Female
  Weight: 76.5 kg

DRUGS (1)
  1. SULFAMETHOXAZOLE AND TRIMETHOPRIM [Suspect]
     Active Substance: SULFAMETHOXAZOLE\TRIMETHOPRIM

REACTIONS (11)
  - Gait disturbance [None]
  - Asthenia [None]
  - Fatigue [None]
  - Bone pain [None]
  - Nausea [None]
  - Dizziness [None]
  - Vomiting [None]
  - Platelet count decreased [None]
  - Full blood count abnormal [None]
  - Serum ferritin increased [None]
  - Drug hypersensitivity [None]

NARRATIVE: CASE EVENT DATE: 20241013
